FAERS Safety Report 14523702 (Version 2)
Quarter: 2018Q2

REPORT INFORMATION
  Report Type: Spontaneous
  Country: IT (occurrence: IT)
  Receive Date: 20180213
  Receipt Date: 20180423
  Transmission Date: 20180711
  Serious: Yes (Hospitalization)
  Sender: FDA-Public Use
  Company Number: IT-ROCHE-2070538

PATIENT
  Age: 38 Year
  Sex: Female

DRUGS (2)
  1. LORMETAZEPAM [Suspect]
     Active Substance: LORMETAZEPAM
     Indication: PRODUCT USED FOR UNKNOWN INDICATION
     Route: 048
  2. CLONAZEPAM. [Suspect]
     Active Substance: CLONAZEPAM
     Indication: PRODUCT USED FOR UNKNOWN INDICATION
     Route: 048

REACTIONS (2)
  - Drug abuse [Unknown]
  - Drug dependence [Unknown]

NARRATIVE: CASE EVENT DATE: 20180117
